FAERS Safety Report 15586900 (Version 2)
Quarter: 2018Q4

REPORT INFORMATION
  Report Type: Spontaneous
  Country: JP (occurrence: JP)
  Receive Date: 20181105
  Receipt Date: 20181119
  Transmission Date: 20190205
  Serious: Yes (Hospitalization, Other)
  Sender: FDA-Public Use
  Company Number: JP-BAUSCH-BL-2018-030557

PATIENT
  Age: 71 Year
  Sex: Female

DRUGS (2)
  1. ZETIA [Concomitant]
     Active Substance: EZETIMIBE
     Indication: PRODUCT USED FOR UNKNOWN INDICATION
  2. MOVIPREP [Suspect]
     Active Substance: ASCORBIC ACID\POLYETHYLENE GLYCOL 3350\POTASSIUM CHLORIDE\SODIUM ASCORBATE\SODIUM CHLORIDE\SODIUM SULFATE
     Indication: BOWEL PREPARATION
     Dosage: START THERAPY 18-OCT-2018 05:00:00 / THERAPY END 18-OCT-2018 07:00:00
     Route: 048
     Dates: start: 20181018, end: 20181018

REACTIONS (10)
  - Altered state of consciousness [Recovered/Resolved]
  - Blood creatine phosphokinase increased [Recovered/Resolved]
  - Hyponatraemia [Recovered/Resolved]
  - Dizziness [Recovered/Resolved]
  - Restlessness [Recovered/Resolved]
  - Seizure [Recovered/Resolved]
  - Vomiting [Recovered/Resolved]
  - Loss of consciousness [Recovered/Resolved]
  - Pyrexia [Recovered/Resolved]
  - Dysarthria [Recovered/Resolved]

NARRATIVE: CASE EVENT DATE: 20181018
